FAERS Safety Report 25369415 (Version 2)
Quarter: 2025Q2

REPORT INFORMATION
  Report Type: Spontaneous
  Country: US (occurrence: US)
  Receive Date: 20250528
  Receipt Date: 20250604
  Transmission Date: 20250716
  Serious: Yes (Other)
  Sender: SANOFI AVENTIS
  Company Number: US-DialogSolutions-SAAVPROD-PI774622-C1

PATIENT
  Age: 54 Year
  Sex: Female

DRUGS (4)
  1. DOCETAXEL [Suspect]
     Active Substance: DOCETAXEL
     Indication: Adenocarcinoma gastric
     Route: 042
  2. OXALIPLATIN [Suspect]
     Active Substance: OXALIPLATIN
     Indication: Adenocarcinoma gastric
     Route: 042
  3. FLUOROURACIL [Suspect]
     Active Substance: FLUOROURACIL
     Indication: Adenocarcinoma gastric
     Route: 042
  4. LEUCOVORIN [Suspect]
     Active Substance: LEUCOVORIN\LEUCOVORIN CALCIUM
     Indication: Adenocarcinoma gastric
     Route: 042

REACTIONS (4)
  - Diabetic ketoacidosis [Unknown]
  - Streptococcal bacteraemia [Unknown]
  - Off label use [Unknown]
  - Drug effective for unapproved indication [Unknown]
